FAERS Safety Report 15213253 (Version 7)
Quarter: 2020Q3

REPORT INFORMATION
  Report Type: Other
  Country: AT (occurrence: AT)
  Receive Date: 20180730
  Receipt Date: 20181220
  Transmission Date: 20201104
  Serious: Yes (Death, Hospitalization, Other)
  Sender: FDA-Public Use
  Company Number: AT-MERCK KGAA-2052894

PATIENT
  Age: 80 Year
  Sex: Female

DRUGS (45)
  1. ACETAZOLAMIDE. [Suspect]
     Active Substance: ACETAZOLAMIDE
  2. FENOTEROL [Suspect]
     Active Substance: FENOTEROL
     Route: 055
  3. ALGELDRATE [Concomitant]
     Active Substance: ALGELDRATE
  4. LEVODOPA [Suspect]
     Active Substance: LEVODOPA
  5. HYDROMORPHONE HYDROCHLORIDE. [Suspect]
     Active Substance: HYDROMORPHONE HYDROCHLORIDE
  6. CLOPIDOGREL BISULFATE. [Suspect]
     Active Substance: CLOPIDOGREL BISULFATE
  7. ACETYLCYSTEINE. [Suspect]
     Active Substance: ACETYLCYSTEINE
  8. DIOSMIN [Suspect]
     Active Substance: DIOSMIN
  9. IBANDRONIC ACID. [Suspect]
     Active Substance: IBANDRONIC ACID
  10. ATORVASTATIN [Suspect]
     Active Substance: ATORVASTATIN
  11. BISOPROLOL [Suspect]
     Active Substance: BISOPROLOL
  12. RISPERIDONE. [Suspect]
     Active Substance: RISPERIDONE
  13. TRAMADOL HYDROCHLORIDE. [Suspect]
     Active Substance: TRAMADOL HYDROCHLORIDE
  14. ACETAZOLAMIDE. [Suspect]
     Active Substance: ACETAZOLAMIDE
  15. SPIRIVA [Suspect]
     Active Substance: TIOTROPIUM BROMIDE MONOHYDRATE
  16. EUTHYROX [Suspect]
     Active Substance: LEVOTHYROXINE SODIUM
     Indication: HYPERTHYROIDISM
  17. ACETYLSALICYLIC ACID [Suspect]
     Active Substance: ASPIRIN
  18. DULOXETINE HYDROCHLORIDE. [Suspect]
     Active Substance: DULOXETINE HYDROCHLORIDE
  19. DICLOFENAC [Suspect]
     Active Substance: DICLOFENAC
  20. THEOPHYLLINE [Suspect]
     Active Substance: THEOPHYLLINE ANHYDROUS
  21. PREDNISONE. [Suspect]
     Active Substance: PREDNISONE
  22. PRAMIPEXOLE HYDROCHLORIDE [Suspect]
     Active Substance: PRAMIPEXOLE DIHYDROCHLORIDE
  23. LISALGIL [Suspect]
     Active Substance: METAMIZOLE SODIUM
     Route: 042
  24. SALMETEROL [Suspect]
     Active Substance: SALMETEROL
     Route: 055
  25. METHYLPREDNISOLONE. [Suspect]
     Active Substance: METHYLPREDNISOLONE
     Route: 042
  26. HESPERIDIN [Concomitant]
     Active Substance: HESPERIDIN
  27. DIPHENHYDRAMINE. [Concomitant]
     Active Substance: DIPHENHYDRAMINE
  28. PREDNISONE. [Suspect]
     Active Substance: PREDNISONE
  29. ALPRAZOLAM. [Suspect]
     Active Substance: ALPRAZOLAM
  30. GABAPENTIN. [Suspect]
     Active Substance: GABAPENTIN
  31. FLUTICASONE. [Suspect]
     Active Substance: FLUTICASONE
     Route: 055
  32. OMEPRAZOLE. [Suspect]
     Active Substance: OMEPRAZOLE
  33. OXYGEN. [Suspect]
     Active Substance: OXYGEN
  34. IPRATROPIUM [Concomitant]
     Active Substance: IPRATROPIUM
  35. FUROSEMIDE. [Concomitant]
     Active Substance: FUROSEMIDE
  36. OMEPRAZOLE. [Suspect]
     Active Substance: OMEPRAZOLE
  37. ALPRAZOLAM. [Suspect]
     Active Substance: ALPRAZOLAM
  38. PIPERACILLIN/TAZOBACTAM [Concomitant]
     Active Substance: PIPERACILLIN SODIUM\TAZOBACTAM SODIUM
  39. EUTHYROX [Suspect]
     Active Substance: LEVOTHYROXINE SODIUM
  40. DULOXETINE HYDROCHLORIDE. [Suspect]
     Active Substance: DULOXETINE HYDROCHLORIDE
  41. BENSERAZIDE [Suspect]
     Active Substance: BENSERAZIDE
  42. SERTRALINE [Suspect]
     Active Substance: SERTRALINE HYDROCHLORIDE
  43. METAMIZOLE [Suspect]
     Active Substance: METAMIZOLE
     Route: 042
  44. VITAMIN D3 [Suspect]
     Active Substance: CHOLECALCIFEROL
  45. MORPHINE HYDROCHLORIDE [Concomitant]
     Active Substance: MORPHINE HYDROCHLORIDE

REACTIONS (19)
  - Chronic obstructive pulmonary disease [None]
  - Urinary tract infection [Fatal]
  - Death [Fatal]
  - Lung disorder [Fatal]
  - Erysipelas [Fatal]
  - Somnolence [Fatal]
  - Back pain [Fatal]
  - Delirium [Fatal]
  - Arthralgia [Fatal]
  - Drug interaction [Fatal]
  - Acute myocardial infarction [Fatal]
  - Prescribed underdose [None]
  - Chronic obstructive pulmonary disease [Fatal]
  - Urinary tract infection [None]
  - Clostridium difficile colitis [Fatal]
  - Acute respiratory failure [Fatal]
  - Hypercapnia [Fatal]
  - Pain [Fatal]
  - Off label use [Fatal]

NARRATIVE: CASE EVENT DATE: 201510
